FAERS Safety Report 9606392 (Version 2)
Quarter: 2013Q4

REPORT INFORMATION
  Report Type: Spontaneous
  Country: US (occurrence: US)
  Receive Date: 20131008
  Receipt Date: 20131008
  Transmission Date: 20140711
  Serious: No
  Sender: FDA-Public Use
  Company Number: US-AMGEN-USASP2013050113

PATIENT
  Age: 93 Year
  Sex: Female

DRUGS (7)
  1. PROLIA [Suspect]
     Indication: OSTEOPOROSIS POSTMENOPAUSAL
     Dosage: UNK
     Route: 065
     Dates: start: 20130703
  2. TYLENOL                            /00020001/ [Concomitant]
     Indication: BACK PAIN
  3. TRAMADOL [Concomitant]
     Indication: BACK PAIN
  4. POTASSIUM [Concomitant]
  5. CALCIUM [Concomitant]
  6. AMLODIPINE [Concomitant]
  7. FUROSEMIDE [Concomitant]

REACTIONS (3)
  - Gait disturbance [Recovered/Resolved]
  - Back pain [Recovered/Resolved]
  - Pain in extremity [Recovered/Resolved]
